FAERS Safety Report 6806857-9 (Version None)
Quarter: 2010Q2

REPORT INFORMATION
  Report Type: 
  Country: None (occurrence: None)
  Receive Date: 20100629
  Receipt Date: 20080520
  Transmission Date: 20101027
  Serious: No
  Sender: FDA-Public Use
  Company Number: US-PFIZER INC-2008043564

PATIENT
  Sex: Female
  Weight: 50.35 kg

DRUGS (3)
  1. ARTHROTEC [Suspect]
     Indication: MUSCULOSKELETAL PAIN
     Route: 048
     Dates: start: 20080519, end: 20080520
  2. ARTHROTEC [Suspect]
     Indication: PAIN IN EXTREMITY
  3. DRUG, UNSPECIFIED [Concomitant]

REACTIONS (1)
  - ABDOMINAL PAIN UPPER [None]
